FAERS Safety Report 10307569 (Version 1)
Quarter: 2014Q3

REPORT INFORMATION
  Report Type: Spontaneous
  Country: US (occurrence: None)
  Receive Date: 20140714
  Receipt Date: 20140714
  Transmission Date: 20150326
  Serious: Yes (Hospitalization, Other)
  Sender: FDA-Public Use
  Company Number: None

PATIENT
  Age: 65 Year
  Sex: Female
  Weight: 81.65 kg

DRUGS (1)
  1. ATIVAN [Suspect]
     Active Substance: LORAZEPAM
     Indication: PAIN
     Dosage: 1 MG  AS NEEDED  INTO A VEIN
     Route: 042
     Dates: start: 20120615, end: 20120619

REACTIONS (4)
  - Abnormal behaviour [None]
  - Amnesia [None]
  - Personality change [None]
  - Skin discolouration [None]

NARRATIVE: CASE EVENT DATE: 20120608
